FAERS Safety Report 21301948 (Version 1)
Quarter: 2022Q3

REPORT INFORMATION
  Report Type: Spontaneous
  Country: US (occurrence: None)
  Receive Date: 20220907
  Receipt Date: 20220907
  Transmission Date: 20221027
  Serious: Yes (Other)
  Sender: FDA-Public Use
  Company Number: US-ROCHE-3172833

PATIENT
  Sex: Male

DRUGS (2)
  1. ALECENSA [Suspect]
     Active Substance: ALECTINIB HYDROCHLORIDE
     Indication: Anaplastic large-cell lymphoma
     Route: 048
     Dates: start: 202202, end: 202208
  2. XALKORI [Concomitant]
     Active Substance: CRIZOTINIB
     Dates: start: 20211229, end: 20220222

REACTIONS (1)
  - Anaplastic large-cell lymphoma [Unknown]
